FAERS Safety Report 6089721-5 (Version None)
Quarter: 2009Q1

REPORT INFORMATION
  Report Type: 
  Country: None (occurrence: None)
  Receive Date: 20090211
  Receipt Date: 20090211
  Transmission Date: 20090719
  Serious: Yes (Other)
  Sender: FDA-Public Use
  Company Number: None

PATIENT
  Age: 65 Year
  Sex: Male

DRUGS (1)
  1. PURSENNID (NCH)(SENNA GLYCOSIDES (CA SALTS OF PURIFIED SENNA EXTRACT) [Suspect]
     Indication: CONSTIPATION

REACTIONS (1)
  - MELANODERMIA [None]
